FAERS Safety Report 9711551 (Version 1)
Quarter: 2013Q4

REPORT INFORMATION
  Report Type: Spontaneous
  Country: US (occurrence: US)
  Receive Date: 20131126
  Receipt Date: 20131126
  Transmission Date: 20140711
  Serious: Yes (Other)
  Sender: FDA-Public Use
  Company Number: US-BRISTOL-MYERS SQUIBB COMPANY-19078880

PATIENT
  Age: 71 Year
  Sex: Male
  Weight: 88.43 kg

DRUGS (2)
  1. BYDUREON [Suspect]
     Indication: TYPE 2 DIABETES MELLITUS
     Dates: start: 201211, end: 201306
  2. AMARYL [Concomitant]
     Indication: BLOOD PRESSURE

REACTIONS (2)
  - Weight decreased [Unknown]
  - Decreased appetite [Recovering/Resolving]
